FAERS Safety Report 9435513 (Version 1)
Quarter: 2013Q3

REPORT INFORMATION
  Report Type: Spontaneous
  Country: US (occurrence: None)
  Receive Date: 20130730
  Receipt Date: 20130730
  Transmission Date: 20140515
  Serious: Yes (Hospitalization)
  Sender: FDA-Public Use
  Company Number: TPA2013A07195

PATIENT
  Sex: Male

DRUGS (1)
  1. OSENI [Suspect]
     Dosage: STOPPED
     Route: 048

REACTIONS (3)
  - Hepatic failure [None]
  - Renal failure [None]
  - Contraindication to medical treatment [None]
